FAERS Safety Report 11599275 (Version 30)
Quarter: 2020Q3

REPORT INFORMATION
  Report Type: Report from Study
  Country: US (occurrence: US)
  Receive Date: 20151006
  Receipt Date: 20200824
  Transmission Date: 20201102
  Serious: Yes (Hospitalization, Other)
  Sender: FDA-Public Use
  Company Number: US-ACTELION-A-NJ2015-124867

PATIENT
  Age: 42 Year
  Sex: Female
  Weight: 65.31 kg

DRUGS (68)
  1. OPSUMIT [Suspect]
     Active Substance: MACITENTAN
     Indication: PULMONARY ARTERIAL HYPERTENSION
     Dosage: 10 MG, QD
     Route: 048
     Dates: start: 20140801, end: 20200104
  2. OPSUMIT [Suspect]
     Active Substance: MACITENTAN
     Dosage: 10 MG, QD
     Route: 048
     Dates: start: 20200121, end: 20200815
  3. XARELTO [Suspect]
     Active Substance: RIVAROXABAN
     Indication: DEEP VEIN THROMBOSIS
     Dosage: 30 MG, QD
     Route: 048
  4. DABIGATRAN [Concomitant]
     Active Substance: DABIGATRAN
     Indication: PRODUCT USED FOR UNKNOWN INDICATION
     Dosage: 150 MG, BID
     Route: 048
     Dates: start: 20111129
  5. ENOXAPARIN [Concomitant]
     Active Substance: ENOXAPARIN
     Dosage: UNK
     Dates: start: 20160417
  6. OXYCODONE [Concomitant]
     Active Substance: OXYCODONE
     Dosage: 30 MG, UNK
  7. ZANTAC [Concomitant]
     Active Substance: RANITIDINE HYDROCHLORIDE
     Dosage: 300 MG, UNK
  8. SENNA LAXATIVE [Concomitant]
     Active Substance: SENNOSIDES
     Dosage: UNK
     Dates: start: 20190716
  9. CALAMINE LOTION PHENOLATED [Concomitant]
     Dosage: UNK
     Dates: start: 20191227
  10. INSULIN LISPRO [Concomitant]
     Active Substance: INSULIN LISPRO
     Dosage: UNK
     Dates: start: 20191227
  11. METRONIDAZOLE. [Concomitant]
     Active Substance: METRONIDAZOLE
     Dosage: UNK
     Dates: start: 20191227
  12. RANITIDINE. [Concomitant]
     Active Substance: RANITIDINE
     Dosage: UNK
     Dates: start: 20191227
  13. LASIX [Suspect]
     Active Substance: FUROSEMIDE
     Dosage: 40 MG, BID
     Route: 048
  14. OXYGEN. [Concomitant]
     Active Substance: OXYGEN
     Dosage: 1 L, UNK AT NIGHT
     Dates: start: 20131014
  15. LEVOFLOXACIN. [Concomitant]
     Active Substance: LEVOFLOXACIN
  16. OMEPRAZOLE. [Concomitant]
     Active Substance: OMEPRAZOLE
  17. IPRATROPIUM [Concomitant]
     Active Substance: IPRATROPIUM
  18. CARVEDILOL. [Concomitant]
     Active Substance: CARVEDILOL
     Dosage: UNK
     Dates: start: 20191227
  19. DEXTROSE 5% [Concomitant]
     Active Substance: DEXTROSE
     Dosage: UNK
     Dates: start: 20191227
  20. PROPOFOL. [Concomitant]
     Active Substance: PROPOFOL
     Dosage: UNK
     Dates: start: 20191227
  21. LASIX [Suspect]
     Active Substance: FUROSEMIDE
     Dosage: 60 MG, BID
     Route: 048
  22. CEPHULAC [Concomitant]
     Active Substance: LACTULOSE
     Dosage: UNK, 10 GM/ML
  23. ACTIGALL [Concomitant]
     Active Substance: URSODIOL
     Dosage: 300 MG, BID
     Route: 048
  24. LACTULOSE. [Concomitant]
     Active Substance: LACTULOSE
  25. DEXTROSE. [Concomitant]
     Active Substance: DEXTROSE
     Dosage: UNK
     Dates: start: 20150906
  26. CALCIUM CARBONATE. [Concomitant]
     Active Substance: CALCIUM CARBONATE
     Dosage: UNK
     Dates: start: 20190716
  27. FERROUS SULFATE. [Concomitant]
     Active Substance: FERROUS SULFATE
  28. SERTRALINE [Concomitant]
     Active Substance: SERTRALINE HYDROCHLORIDE
     Dosage: UNK
     Dates: start: 20190716
  29. ACETAMINOPHEN. [Concomitant]
     Active Substance: ACETAMINOPHEN
     Dosage: UNK
     Dates: start: 20191227
  30. PERFLUTREN [Concomitant]
     Active Substance: PERFLUTREN
     Dosage: UNK
     Dates: start: 20191227
  31. LASIX [Suspect]
     Active Substance: FUROSEMIDE
     Indication: OEDEMA PERIPHERAL
     Dosage: 80 MG, BID
     Route: 048
     Dates: start: 20150131
  32. PRILOSEC [Concomitant]
     Active Substance: OMEPRAZOLE MAGNESIUM
     Dosage: 40 MG, UNK
  33. CHOLECALCIFEROL [Concomitant]
     Active Substance: CHOLECALCIFEROL
     Dosage: 1000 U, QD
     Route: 048
     Dates: start: 20140219
  34. RIFAXIMIN. [Concomitant]
     Active Substance: RIFAXIMIN
  35. FENTANYL. [Concomitant]
     Active Substance: FENTANYL
     Dosage: UNK
     Dates: start: 20150822
  36. SPIRONOLACTONE. [Concomitant]
     Active Substance: SPIRONOLACTONE
     Dosage: UNK
     Dates: start: 20100222
  37. FAMOTIDINE. [Concomitant]
     Active Substance: FAMOTIDINE
     Dosage: UNK
     Dates: start: 20191227
  38. MULTIVITAMIN [Concomitant]
     Active Substance: VITAMINS
     Dosage: UNK
     Dates: start: 20191227
  39. NOREPINEPHRINE. [Concomitant]
     Active Substance: NOREPINEPHRINE
     Dosage: UNK
     Dates: start: 20191227
  40. SILDENAFIL CITRATE. [Concomitant]
     Active Substance: SILDENAFIL CITRATE
  41. ALDACTONE [Concomitant]
     Active Substance: SPIRONOLACTONE
     Dosage: 50 MG, UNK
  42. ALBUMIN [Concomitant]
     Active Substance: ALBUMIN HUMAN
     Dosage: UNK
     Dates: start: 20150906
  43. NICOTINE. [Concomitant]
     Active Substance: NICOTINE
     Dosage: UNK
     Dates: start: 20190716
  44. LEVOTHYROXINE. [Concomitant]
     Active Substance: LEVOTHYROXINE
  45. MAGNESIUM SULFATE. [Concomitant]
     Active Substance: MAGNESIUM SULFATE
     Dosage: UNK
     Dates: start: 20191227
  46. ONDASETRON [Concomitant]
     Active Substance: ONDANSETRON
     Dosage: UNK
     Dates: start: 20191227
  47. PROCHLORPERAZINE. [Concomitant]
     Active Substance: PROCHLORPERAZINE
     Dosage: UNK
     Dates: start: 20191227
  48. XARELTO [Suspect]
     Active Substance: RIVAROXABAN
     Indication: THROMBOSIS
     Dosage: 20 MG, UNK
     Route: 048
  49. REVATIO [Concomitant]
     Active Substance: SILDENAFIL CITRATE
     Dosage: 20 MG, TID
     Route: 048
  50. ASPIRIN. [Concomitant]
     Active Substance: ASPIRIN
  51. IOHEXOL [Concomitant]
     Active Substance: IOHEXOL
     Dosage: UNK
     Dates: start: 20160417
  52. ALBUTEROL. [Concomitant]
     Active Substance: ALBUTEROL
     Dosage: UNK
     Dates: start: 20190716
  53. IODIXANOL. [Concomitant]
     Active Substance: IODIXANOL
     Dosage: UNK
     Dates: start: 20191227
  54. ALBUTEROL W/IPRATROPIUM [Concomitant]
     Active Substance: ALBUTEROL\IPRATROPIUM
     Dosage: UNK
     Dates: start: 20191227
  55. METOLAZONE. [Suspect]
     Active Substance: METOLAZONE
     Indication: OEDEMA PERIPHERAL
     Dosage: 2.5 MG, QD
     Route: 048
  56. FOLIC ACID. [Concomitant]
     Active Substance: FOLIC ACID
     Dosage: 1 MG, QD
     Route: 048
     Dates: start: 20150307
  57. POTASSIUM CHLORIDE. [Concomitant]
     Active Substance: POTASSIUM CHLORIDE
     Dosage: UNK
     Dates: start: 20160220
  58. HYDROMORPHONE [Concomitant]
     Active Substance: HYDROMORPHONE
     Dosage: UNK
     Dates: start: 20191227
  59. THIAMINE. [Concomitant]
     Active Substance: THIAMINE
     Dosage: UNK
     Dates: start: 20191227
  60. XIFAXAN [Concomitant]
     Active Substance: RIFAXIMIN
     Dosage: 550 MG, UNK
  61. FERROUS SULFATE. [Concomitant]
     Active Substance: FERROUS SULFATE
     Dosage: UNK
     Dates: start: 20151105
  62. METHADONE [Concomitant]
     Active Substance: METHADONE HYDROCHLORIDE
     Dosage: UNK
     Dates: start: 20080225
  63. AZITHROMYCIN ANHYDROUS. [Concomitant]
     Active Substance: AZITHROMYCIN ANHYDROUS
     Dosage: UNK
     Dates: start: 20191227
  64. CEFEPIME [Concomitant]
     Active Substance: CEFEPIME HYDROCHLORIDE
     Dosage: UNK
     Dates: start: 20191227
  65. CHLORHEXIDINE [Concomitant]
     Active Substance: CHLORHEXIDINE
     Dosage: UNK
     Dates: start: 20191227
  66. OXYMETAZOLINE [Concomitant]
     Active Substance: OXYMETAZOLINE
     Dosage: UNK
     Dates: start: 20191227
  67. PHOSPHATE SANDOZ [Concomitant]
     Active Substance: SODIUM PHOSPHATE, MONOBASIC, ANHYDROUS
     Dosage: UNK
     Dates: start: 20191227
  68. SODIUM CHLORIDE. [Concomitant]
     Active Substance: SODIUM CHLORIDE
     Dosage: UNK
     Dates: start: 20191227

REACTIONS (79)
  - Dyspnoea exertional [Recovered/Resolved]
  - Faeces discoloured [Recovered/Resolved]
  - Pneumonia [Unknown]
  - Gastrointestinal erosion [Unknown]
  - Chills [Recovered/Resolved]
  - Varices oesophageal [Unknown]
  - Gastric ulcer [Unknown]
  - Blood lactate dehydrogenase increased [Unknown]
  - Somnolence [Recovered/Resolved]
  - Haematocrit decreased [Unknown]
  - Fluid overload [Recovered/Resolved]
  - Wound infection pseudomonas [Unknown]
  - Crying [Unknown]
  - Portal hypertensive gastropathy [Unknown]
  - Upper gastrointestinal haemorrhage [Recovered/Resolved]
  - Compression fracture [Unknown]
  - Gastric disorder [Unknown]
  - Hospitalisation [Unknown]
  - Headache [Recovered/Resolved]
  - Right ventricular failure [Recovered/Resolved]
  - Back pain [Recovered/Resolved]
  - Blood bilirubin increased [Unknown]
  - Fatigue [Recovered/Resolved]
  - Renal failure [Unknown]
  - Transfusion [Unknown]
  - Dyspnoea [Recovered/Resolved]
  - Condition aggravated [Unknown]
  - Mental status changes [Recovered/Resolved]
  - Chest pain [Recovered/Resolved]
  - Hypoxia [Recovered/Resolved]
  - Septic shock [Recovered/Resolved]
  - Gastric polyps [Unknown]
  - Oedema peripheral [Unknown]
  - Hypervolaemia [Recovered/Resolved]
  - Pneumonia escherichia [Unknown]
  - Surgery [Unknown]
  - Haemolysis [Unknown]
  - Pain in extremity [Recovered/Resolved]
  - Skin ulcer [Unknown]
  - Post thrombotic syndrome [Unknown]
  - Nausea [Recovered/Resolved]
  - Dysphagia [Recovered/Resolved]
  - Respiratory distress [Recovered/Resolved]
  - Rhinitis [Unknown]
  - Respiratory failure [Recovered/Resolved]
  - Bronchial wall thickening [Recovered/Resolved]
  - Pulmonary oedema [Unknown]
  - Deep vein thrombosis [Recovered/Resolved]
  - Oxygen consumption increased [Unknown]
  - Malnutrition [Recovered/Resolved]
  - Rhonchi [Unknown]
  - Haemoptysis [Unknown]
  - Haemorrhage [Unknown]
  - Anaemia [Recovered/Resolved]
  - Oxygen therapy [Unknown]
  - Jaundice acholuric [Recovered/Resolved]
  - Ammonia increased [Recovered/Resolved]
  - Haptoglobin decreased [Unknown]
  - Oedema [Recovered/Resolved]
  - Gastrooesophageal reflux disease [Unknown]
  - Internal haemorrhage [Unknown]
  - Gastrointestinal haemorrhage [Recovered/Resolved]
  - Atelectasis [Unknown]
  - Dizziness [Recovered/Resolved]
  - Melaena [Recovered/Resolved]
  - Occult blood positive [Recovered/Resolved]
  - Erythema [Recovered/Resolved]
  - Peripheral venous disease [Recovered/Resolved]
  - Cellulitis [Unknown]
  - Dermatitis [Unknown]
  - Abdominal pain [Recovered/Resolved]
  - Hypothyroidism [Unknown]
  - Hepatic encephalopathy [Unknown]
  - Confusional state [Unknown]
  - Swelling [Unknown]
  - Haemoglobin decreased [Recovered/Resolved]
  - Encephalopathy [Recovered/Resolved]
  - Gastrointestinal mucosal disorder [Unknown]
  - Toxic encephalopathy [Recovered/Resolved]

NARRATIVE: CASE EVENT DATE: 201412
